FAERS Safety Report 8510997-6 (Version None)
Quarter: 2012Q3

REPORT INFORMATION
  Report Type: 
  Country: None (occurrence: None)
  Receive Date: 20120703
  Receipt Date: 20120625
  Transmission Date: 20120928
  Serious: Yes (Hospitalization)
  Sender: FDA-Public Use
  Company Number: AUR-APL-2012-02824

PATIENT
  Age: 75 Year
  Sex: Male
  Weight: 80 kg

DRUGS (9)
  1. CELLCEPT [Suspect]
     Indication: IMMUNOSUPPRESSION
  2. PROTAPHANE HM (INSULIN HUMAN INJECTION, ISOPHANE) [Concomitant]
  3. CYCLOSPORINE [Suspect]
     Indication: IMMUNOSUPPRESSION
     Dates: start: 20071109
  4. ALT-INSULIN [Concomitant]
  5. PANTOPRAZOLE [Concomitant]
  6. HYDROCHLOROTHIAZIDE [Concomitant]
  7. MOXONIDINE (MOXONIDINE) [Suspect]
     Indication: HYPERTENSION
  8. RAMIPRIL [Suspect]
     Indication: HYPERTENSION
  9. SIROLIMUS (RAPAMUNE) [Suspect]
     Indication: PROPHYLAXIS AGAINST TRANSPLANT REJECTION
     Dates: start: 20080210

REACTIONS (2)
  - DRUG INEFFECTIVE [None]
  - HEPATIC NEOPLASM MALIGNANT RECURRENT [None]
